FAERS Safety Report 11390888 (Version 1)
Quarter: 2015Q3

REPORT INFORMATION
  Report Type: Spontaneous
  Country: DE (occurrence: None)
  Receive Date: 20150813
  Receipt Date: 20150813
  Transmission Date: 20151125
  Serious: Yes (Other)
  Sender: FDA-Public Use
  Company Number: 2015RR-101351

PATIENT
  Age: 1 Day
  Sex: Male

DRUGS (6)
  1. L-THYROXINE (LEVOTHYROXINE SODIUM) [Concomitant]
  2. VENLAFAXINE [Suspect]
     Active Substance: VENLAFAXINE HYDROCHLORIDE
     Indication: DEPRESSION
     Dosage: FROM 0-35.5 GESTATIONAL WEEK
     Route: 064
     Dates: start: 20131215, end: 20140822
  3. CLEXANE 40 (ENOXAPARIN) [Concomitant]
  4. PERAZINE (PERAZINE) [Concomitant]
     Active Substance: PERAZINE
     Indication: ANXIETY DISORDER
     Dosage: FROM 0-35.5 GESTATIONAL WEEK
     Route: 064
     Dates: start: 20131215, end: 20140822
  5. ASS 100 (ACETYLSALICYLIC ACID) [Concomitant]
  6. FOLSAURE (FOLIC ACID) [Concomitant]

REACTIONS (6)
  - Caesarean section [None]
  - Respiratory disorder neonatal [None]
  - Convulsion neonatal [None]
  - Maternal drugs affecting foetus [None]
  - Seizure [None]
  - Foetal exposure during pregnancy [None]

NARRATIVE: CASE EVENT DATE: 20140822
